FAERS Safety Report 20375101 (Version 1)
Quarter: 2022Q1

REPORT INFORMATION
  Report Type: Spontaneous
  Country: US (occurrence: US)
  Receive Date: 20220125
  Receipt Date: 20220125
  Transmission Date: 20220423
  Serious: Yes (Other)
  Sender: FDA-Public Use
  Company Number: US-SANOFI-00670333

PATIENT
  Sex: Female

DRUGS (1)
  1. ICY HOT ARM NECK LEG AND SMALL AREAS [Suspect]
     Active Substance: MENTHOL
     Dosage: UNK

REACTIONS (5)
  - Disability [Unknown]
  - Pain [Unknown]
  - Wrong technique in product usage process [Unknown]
  - Product use complaint [Unknown]
  - Therapeutic product effect decreased [Unknown]
